FAERS Safety Report 7439620-9 (Version None)
Quarter: 2011Q2

REPORT INFORMATION
  Report Type: 
  Country: None (occurrence: None)
  Receive Date: 20110427
  Receipt Date: 20110426
  Transmission Date: 20111010
  Serious: Yes (Hospitalization)
  Sender: FDA-Public Use
  Company Number: AT-BRISTOL-MYERS SQUIBB COMPANY-15644487

PATIENT
  Age: 72 Year
  Sex: Female

DRUGS (11)
  1. VALPROIC ACID [Concomitant]
  2. LEVOTHYROXINE SODIUM [Concomitant]
  3. ROTIGOTINE [Concomitant]
     Dosage: ROTIGOTIN PLASTER
  4. ABILIFY [Suspect]
     Indication: BIPOLAR DISORDER
     Dosage: IM ARIPIPRAZOLE 9.75 MG ALSO
     Route: 048
     Dates: start: 20040101
  5. ZUCLOPENTHIXOL ACETATE [Concomitant]
     Dates: start: 20110202
  6. SIMVASTATIN [Concomitant]
  7. FUROSEMIDE [Concomitant]
  8. QUETIAPINE [Concomitant]
     Dates: end: 20110201
  9. BIPERIDEN HYDROCHLORIDE TAB [Concomitant]
  10. ZOLPIDEM [Concomitant]
     Dates: end: 20110201
  11. PROTHIPENDYL HCL [Concomitant]

REACTIONS (1)
  - MANIA [None]
